FAERS Safety Report 18232715 (Version 1)
Quarter: 2020Q3

REPORT INFORMATION
  Report Type: Report from Study
  Country: CA (occurrence: CA)
  Receive Date: 20200904
  Receipt Date: 20200904
  Transmission Date: 20201103
  Serious: Yes (Other)
  Sender: FDA-Public Use
  Company Number: CA-GLAXOSMITHKLINE-CA2020AMR069330

PATIENT
  Sex: Female

DRUGS (1)
  1. MEPOLIZUMAB [Suspect]
     Active Substance: MEPOLIZUMAB
     Indication: ASTHMA
     Dosage: 100 MG, Z (MONTHLY)
     Route: 042
     Dates: start: 20200325

REACTIONS (19)
  - Dyspnoea [Unknown]
  - Fatigue [Unknown]
  - Condition aggravated [Unknown]
  - Rib fracture [Unknown]
  - Fall [Unknown]
  - Fibromyalgia [Not Recovered/Not Resolved]
  - Pneumonia [Unknown]
  - Malaise [Unknown]
  - Sleep disorder [Unknown]
  - Gait inability [Unknown]
  - Pain [Unknown]
  - Myalgia [Unknown]
  - Multiple allergies [Unknown]
  - Adverse drug reaction [Unknown]
  - Headache [Not Recovered/Not Resolved]
  - Anxiety [Unknown]
  - Limb injury [Unknown]
  - Frustration tolerance decreased [Unknown]
  - Sensitivity to weather change [Unknown]
